FAERS Safety Report 8494134-2 (Version None)
Quarter: 2012Q3

REPORT INFORMATION
  Report Type: 
  Country: None (occurrence: None)
  Receive Date: 20120709
  Receipt Date: 20120702
  Transmission Date: 20120928
  Serious: Yes (Death, Hospitalization)
  Sender: FDA-Public Use
  Company Number: US-ELI_LILLY_AND_COMPANY-US201206001384

PATIENT
  Sex: Male
  Weight: 73.923 kg

DRUGS (5)
  1. ALIMTA [Suspect]
     Dosage: 375 MG/M2, EVERY 3 WEEKS
     Route: 042
     Dates: start: 20110709
  2. FOLIC ACID [Concomitant]
     Dosage: 4 MG, QD
     Dates: start: 20110709
  3. ALIMTA [Suspect]
     Dosage: UNK, UNKNOWN
     Route: 065
     Dates: start: 20110627
  4. VITAMIN B-12 [Concomitant]
     Dosage: 1000 UG, WEEKLY (1/W)
     Dates: start: 20110709
  5. CORTICOSTEROID NOS [Concomitant]
     Dosage: 4 MG, TID
     Dates: start: 20110701

REACTIONS (2)
  - PANCYTOPENIA [None]
  - PNEUMONIA [None]
